FAERS Safety Report 5343344-1 (Version None)
Quarter: 2007Q2

REPORT INFORMATION
  Report Type: 
  Country: None (occurrence: None)
  Receive Date: 20070501
  Receipt Date: 20070215
  Transmission Date: 20071010
  Serious: No
  Sender: FDA-Public Use
  Company Number: 200711068US

PATIENT
  Age: 42 Year
  Sex: Female

DRUGS (4)
  1. KETEK [Suspect]
     Indication: SINUSITIS
     Dosage: 800 MG QD
     Dates: start: 20070209, end: 20070211
  2. SYNTHROID [Concomitant]
  3. CETIRIZINE HYDROCHLORIDE (ZYRTEC /00884302/) [Concomitant]
  4. FLUTICASONE PROPIONATE, SALMETEROL XINAFOATE (ADVAIR) [Concomitant]

REACTIONS (9)
  - ASTHENIA [None]
  - BEDRIDDEN [None]
  - DIZZINESS [None]
  - LETHARGY [None]
  - NAUSEA [None]
  - PARAESTHESIA [None]
  - SENSORY LOSS [None]
  - SPEECH DISORDER [None]
  - VISION BLURRED [None]
